FAERS Safety Report 19707225 (Version 1)
Quarter: 2021Q3

REPORT INFORMATION
  Report Type: Report from Study
  Country: US (occurrence: US)
  Receive Date: 20210817
  Receipt Date: 20210817
  Transmission Date: 20211014
  Serious: Yes (Hospitalization)
  Sender: FDA-Public Use
  Company Number: US-BAYER-2021-182482

PATIENT
  Age: 80 Year
  Sex: Male
  Weight: 73.02 kg

DRUGS (5)
  1. ADEMPAS [Suspect]
     Active Substance: RIOCIGUAT
     Indication: PULMONARY ARTERIAL HYPERTENSION
     Dosage: 2.0 MG, TID
     Route: 048
  2. ELIQUIS [Concomitant]
     Active Substance: APIXABAN
  3. OPSUMIT [Concomitant]
     Active Substance: MACITENTAN
  4. ORENITRAM [Concomitant]
     Active Substance: TREPROSTINIL
  5. ADEMPAS [Suspect]
     Active Substance: RIOCIGUAT
     Indication: PULMONARY ARTERIAL HYPERTENSION
     Dosage: UNK
     Dates: start: 20210217

REACTIONS (6)
  - Peripheral swelling [Not Recovered/Not Resolved]
  - Periorbital swelling [None]
  - Dyspnoea [Not Recovered/Not Resolved]
  - Oedema [None]
  - Hospitalisation [None]
  - Fatigue [None]
